FAERS Safety Report 5194672-4 (Version None)
Quarter: 2006Q4

REPORT INFORMATION
  Report Type: 
  Country: None (occurrence: None)
  Receive Date: 20061229
  Receipt Date: 20061227
  Transmission Date: 20070319
  Serious: Yes (Death, Hospitalization)
  Sender: FDA-Public Use
  Company Number: US-JNJFOC-20060401378

PATIENT
  Sex: Female
  Weight: 72.5 kg

DRUGS (10)
  1. YONDELIS [Suspect]
     Route: 042
  2. YONDELIS [Suspect]
     Indication: OVARIAN CANCER
     Route: 042
  3. DOXIL [Suspect]
     Route: 042
  4. DOXIL [Suspect]
     Indication: OVARIAN CANCER
     Route: 042
  5. OXYCODONE HCL [Concomitant]
     Route: 048
  6. SYNTHROID [Concomitant]
     Route: 048
  7. DILAUDID [Concomitant]
     Route: 048
  8. COMPAZINE [Concomitant]
  9. ATIVAN [Concomitant]
  10. ZOFRAN [Concomitant]

REACTIONS (6)
  - INTESTINAL OBSTRUCTION [None]
  - OVARIAN CANCER [None]
  - PLEURAL EFFUSION [None]
  - PULMONARY EMBOLISM [None]
  - RESPIRATORY FAILURE [None]
  - VOMITING [None]
